FAERS Safety Report 9920791 (Version 1)
Quarter: 2014Q1

REPORT INFORMATION
  Report Type: Spontaneous
  Country: DE (occurrence: DE)
  Receive Date: 20140224
  Receipt Date: 20140224
  Transmission Date: 20141002
  Serious: Yes (Other)
  Sender: FDA-Public Use
  Company Number: DE-MYLANLABS-2014S1003125

PATIENT
  Age: 53 Year
  Sex: Female
  Weight: 89 kg

DRUGS (1)
  1. METHOTREXATE [Suspect]
     Indication: RHEUMATOID ARTHRITIS
     Dosage: DAILY DOSE: 25 MG MILLIGRAM(S) EVERY WEEK
     Route: 058

REACTIONS (2)
  - Alveolitis [Not Recovered/Not Resolved]
  - Sarcoidosis [Not Recovered/Not Resolved]
